FAERS Safety Report 21517514 (Version 1)
Quarter: 2022Q4

REPORT INFORMATION
  Report Type: Spontaneous
  Country: US (occurrence: US)
  Receive Date: 20221028
  Receipt Date: 20221028
  Transmission Date: 20230112
  Serious: Yes (Other)
  Sender: FDA-Public Use
  Company Number: US-SA-SAC20221026000543

PATIENT
  Age: 32 Year
  Sex: Female

DRUGS (1)
  1. ZANTAC [Suspect]
     Active Substance: RANITIDINE HYDROCHLORIDE
     Dosage: 150 MG QD
     Dates: start: 196001, end: 202001

REACTIONS (4)
  - Uterine cancer [Unknown]
  - Breast cancer female [Unknown]
  - Lung neoplasm malignant [Unknown]
  - Gastric cancer [Unknown]

NARRATIVE: CASE EVENT DATE: 19700101
